FAERS Safety Report 5011145-X (Version None)
Quarter: 2006Q2

REPORT INFORMATION
  Report Type: 
  Country: None (occurrence: None)
  Receive Date: 20060523
  Receipt Date: 20060425
  Transmission Date: 20061013
  Serious: Yes (Other)
  Sender: FDA-Public Use
  Company Number: 2006BH009237

PATIENT
  Age: 31 Year
  Sex: Female

DRUGS (5)
  1. SUPRANE [Suspect]
     Indication: INDUCTION OF ANAESTHESIA
     Dosage: 450 MG
     Dates: start: 20060308, end: 20060308
  2. FENTANYL CITRATE [Suspect]
     Indication: INDUCTION OF ANAESTHESIA
     Dosage: 5 MG
     Dates: start: 20060308, end: 20060308
  3. ATROPINE SULFATE [Suspect]
     Indication: INDUCTION OF ANAESTHESIA
     Dates: start: 20060308, end: 20060308
  4. PENTOTHAL-NATRIUM (THIOPENTAL SODIUM) [Suspect]
     Indication: INDUCTION OF ANAESTHESIA
     Dosage: 0.4 MG
     Dates: start: 20060308, end: 20060308
  5. NORCURON [Suspect]
     Indication: INDUCTION OF ANAESTHESIA
     Dosage: 2 MG
     Dates: start: 20060308, end: 20060308

REACTIONS (3)
  - ANAESTHETIC COMPLICATION [None]
  - OXYGEN SATURATION DECREASED [None]
  - RASH [None]
